FAERS Safety Report 7683390-6 (Version None)
Quarter: 2011Q3

REPORT INFORMATION
  Report Type: 
  Country: None (occurrence: None)
  Receive Date: 20110815
  Receipt Date: 20110627
  Transmission Date: 20111222
  Serious: No
  Sender: FDA-Public Use
  Company Number: US-BAYER-2011-055883

PATIENT
  Age: 57 Year
  Sex: Male

DRUGS (1)
  1. LEUKINE [Suspect]
     Dosage: UNK
     Dates: start: 20110614

REACTIONS (1)
  - HERPES ZOSTER [None]
